FAERS Safety Report 8532461-0 (Version None)
Quarter: 2012Q3

REPORT INFORMATION
  Report Type: 
  Country: None (occurrence: None)
  Receive Date: 20120724
  Receipt Date: 20120712
  Transmission Date: 20120928
  Serious: Yes (Hospitalization, Other)
  Sender: FDA-Public Use
  Company Number: JP-VERTEX PHARMACEUTICALS INC.-AE-2012-008322

PATIENT
  Age: 53 Year
  Sex: Male

DRUGS (10)
  1. NORVASC [Concomitant]
     Route: 048
  2. CLARITIN REDITABS [Concomitant]
     Route: 048
  3. TELAVIC (TELAPREVIR) [Suspect]
     Indication: HEPATITIS C
     Route: 048
     Dates: start: 20120328
  4. FEROTYM [Concomitant]
     Route: 048
  5. LIVALO [Concomitant]
     Route: 048
  6. EPADEL S [Concomitant]
     Route: 048
  7. CANDESARTAN CILEXETIL [Concomitant]
     Route: 048
  8. MAGLAX [Concomitant]
     Route: 048
  9. RIBAVIRIN [Concomitant]
     Indication: HEPATITIS C
     Route: 048
     Dates: start: 20120328
  10. PEGINTERFERON ALFA-2B [Concomitant]
     Route: 058
     Dates: start: 20120328

REACTIONS (2)
  - ANAEMIA [None]
  - RASH [None]
